FAERS Safety Report 9486127 (Version 1)
Quarter: 2013Q3

REPORT INFORMATION
  Report Type: Spontaneous
  Country: CN (occurrence: CN)
  Receive Date: 20130829
  Receipt Date: 20130829
  Transmission Date: 20140515
  Serious: Yes (Other)
  Sender: FDA-Public Use
  Company Number: CN-ELI_LILLY_AND_COMPANY-CN201308007291

PATIENT
  Age: 60 Year
  Sex: Female

DRUGS (2)
  1. ALIMTA [Suspect]
     Indication: LUNG ADENOCARCINOMA
     Dosage: 800 MG, SINGLE
     Route: 042
     Dates: start: 20130708, end: 20130708
  2. CARBOPLATIN [Concomitant]
     Indication: LUNG ADENOCARCINOMA
     Dosage: UNK
     Dates: start: 20130708

REACTIONS (6)
  - Cerebral infarction [Unknown]
  - Fatigue [Recovering/Resolving]
  - Aphasia [Recovering/Resolving]
  - Alexia [Recovering/Resolving]
  - Amnesia [Recovering/Resolving]
  - Off label use [Recovered/Resolved]
